FAERS Safety Report 15923466 (Version 1)
Quarter: 2019Q1

REPORT INFORMATION
  Report Type: Spontaneous
  Country: DE (occurrence: DE)
  Receive Date: 20190206
  Receipt Date: 20190206
  Transmission Date: 20190417
  Serious: Yes (Hospitalization)
  Sender: FDA-Public Use
  Company Number: DE-ACCORD-105658

PATIENT
  Age: 58 Year
  Sex: Female
  Weight: 75 kg

DRUGS (17)
  1. MORPHINE [Concomitant]
     Active Substance: MORPHINE
     Dosage: 5 MG, 1-0-1-0, SOLUTION FOR INJECTION / INFUSION
     Route: 058
  2. VOMEX A [Concomitant]
     Active Substance: DIMENHYDRINATE
     Dosage: AS REQUIRED
     Route: 048
  3. TORASEMIDE [Concomitant]
     Active Substance: TORSEMIDE
     Dosage: 10 MG, 1-0-0-0, TABLET
     Route: 048
  4. HALDOL [Concomitant]
     Active Substance: HALOPERIDOL
     Dosage: 0.5 ML, 1-0-1-0, DROPS
     Route: 048
  5. METOCLOPRAMIDE. [Concomitant]
     Active Substance: METOCLOPRAMIDE
     Dosage: 10 MG, AS NEEDED, TABLETS
     Route: 048
  6. PANTOPRAZOLE [Concomitant]
     Active Substance: PANTOPRAZOLE
     Dosage: 40 MG, 1-0-1-0, TABLET
     Route: 048
  7. PEGFILGRASTIM [Concomitant]
     Active Substance: PEGFILGRASTIM
     Dosage: 6 MG, ACCORDING TO THE SCHEME, SOLUTION FOR INJECTION / INFUSION
     Route: 042
  8. METAMIZOLE SODIUM [Concomitant]
     Active Substance: METAMIZOLE SODIUM
     Dosage: 1000 MG, 1-1-1-1, TABLET
     Route: 048
  9. LEVOTHYROXINE. [Concomitant]
     Active Substance: LEVOTHYROXINE
     Dosage: 50 UG, 1-0-0-0, TABLET
     Route: 048
  10. SPIOLTO [Concomitant]
     Active Substance: OLODATEROL HYDROCHLORIDE\TIOTROPIUM BROMIDE MONOHYDRATE
     Dosage: 2.5/2.5 UG, 2-0-0-0, DOSIERAEROSOL
     Route: 055
  11. GRANISETRON [Concomitant]
     Active Substance: GRANISETRON
     Dosage: 3.1 MG, EVERY 5 DAYS, PATCH TRANSDERMALLY
     Route: 062
  12. HYDROCHLOROTHIAZIDE. [Concomitant]
     Active Substance: HYDROCHLOROTHIAZIDE
     Dosage: 12.5 MG, 1-0-0-0, TABLET
     Route: 048
  13. SITAGLIPTIN/SITAGLIPTIN PHOSPHATE [Concomitant]
     Dosage: 100 MG, 1-0-0-0, TABLET
     Route: 048
  14. OLANZAPINE. [Concomitant]
     Active Substance: OLANZAPINE
     Dosage: 5 MG, 1-0-0-0, TABLET
     Route: 048
  15. TOPOTECAN [Suspect]
     Active Substance: TOPOTECAN HYDROCHLORIDE
     Indication: PRODUCT USED FOR UNKNOWN INDICATION
     Dosage: 10.25 MG, ACCORDING TO THE SCHEME, SOLUTION FOR INJECTION / INFUSION
     Route: 042
  16. BISOPROLOL [Concomitant]
     Active Substance: BISOPROLOL
     Dosage: 5 MG, 1-0-0-0, TABLET
     Route: 048
  17. METFORMIN [Concomitant]
     Active Substance: METFORMIN HYDROCHLORIDE
     Dosage: 1000 MG, 1-0-1-0, TABLET
     Route: 048

REACTIONS (2)
  - Systemic infection [Unknown]
  - Hypotension [Unknown]
